FAERS Safety Report 8530413-8 (Version None)
Quarter: 2012Q3

REPORT INFORMATION
  Report Type: 
  Country: None (occurrence: None)
  Receive Date: 20120723
  Receipt Date: 20120710
  Transmission Date: 20120928
  Serious: Yes (Life-Threatening, Hospitalization, Other)
  Sender: FDA-Public Use
  Company Number: JP-PFIZER INC-2012147915

PATIENT
  Age: 84 Year
  Sex: Female
  Weight: 36.5 kg

DRUGS (15)
  1. RHEUMATREX [Concomitant]
     Indication: RHEUMATOID ARTHRITIS
     Dosage: 4 MG, WEEKLY
     Route: 048
  2. MOBIC [Concomitant]
     Indication: RHEUMATOID ARTHRITIS
     Dosage: 10 MG, 1X/DAY
     Route: 048
  3. SELBEX [Concomitant]
     Indication: GASTROOESOPHAGEAL REFLUX DISEASE
     Dosage: 50 MG, 3X/DAY
     Route: 048
  4. DIFLUCAN [Suspect]
     Dosage: 200 MG, 2X/DAY
     Route: 048
     Dates: start: 20120606, end: 20120607
  5. ACTONEL [Concomitant]
     Indication: OSTEOPOROSIS
     Dosage: 17.5 MG, WEEKLY
     Route: 048
  6. ALFAROL [Concomitant]
     Indication: OSTEOPOROSIS
     Dosage: 1 MG, 1X/DAY
     Route: 048
  7. LAC B [Concomitant]
     Indication: IRRITABLE BOWEL SYNDROME
     Dosage: 1 G, 3X/DAY
     Route: 048
  8. DIFLUCAN [Suspect]
     Indication: PNEUMONIA CRYPTOCOCCAL
     Dosage: 200 MG, 2X/DAY
     Route: 048
     Dates: start: 20120403, end: 20120529
  9. OLMESARTAN MEDOXOMIL [Suspect]
     Indication: HYPERTENSION
     Dosage: 20 MG, 1X/DAY
     Route: 048
     Dates: end: 20120424
  10. DEPAS [Concomitant]
     Indication: PSYCHOSOMATIC DISEASE
     Dosage: 0.5 MG, 2X/DAY
     Route: 048
  11. FOLIAMIN [Concomitant]
     Indication: FOLATE DEFICIENCY
     Dosage: 5 MG, WEEKLY
     Route: 048
  12. RABEPRAZOLE SODIUM [Concomitant]
     Indication: GASTROOESOPHAGEAL REFLUX DISEASE
     Dosage: 10 MG, 1X/DAY
     Route: 048
  13. PROGRAF [Concomitant]
     Indication: RHEUMATOID ARTHRITIS
     Dosage: 1 MG, 1X/DAY
     Route: 048
  14. DIFLUCAN [Suspect]
     Dosage: 200 MG, UNK
     Route: 048
     Dates: start: 20120608
  15. GANATON [Concomitant]
     Indication: IRRITABLE BOWEL SYNDROME
     Dosage: 50 MG, 3X/DAY
     Route: 048

REACTIONS (3)
  - RENAL DISORDER [None]
  - HYPERKALAEMIA [None]
  - BLOOD PRESSURE DECREASED [None]
